FAERS Safety Report 17189442 (Version 1)
Quarter: 2019Q4

REPORT INFORMATION
  Report Type: Spontaneous
  Country: FR (occurrence: FR)
  Receive Date: 20191223
  Receipt Date: 20191223
  Transmission Date: 20200122
  Serious: Yes (Hospitalization)
  Sender: FDA-Public Use
  Company Number: FR-ROCHE-2496918

PATIENT
  Age: 50 Year
  Sex: Female
  Weight: 83 kg

DRUGS (8)
  1. LAROXYL [Concomitant]
     Active Substance: AMITRIPTYLINE HYDROCHLORIDE
     Indication: DEPRESSION
     Route: 048
     Dates: end: 20191111
  2. VALIUM [Suspect]
     Active Substance: DIAZEPAM
     Indication: AGGRESSION
     Route: 048
     Dates: start: 20191031, end: 20191111
  3. ZYPREXA [Concomitant]
     Active Substance: OLANZAPINE
     Indication: PSYCHOTIC DISORDER
     Dosage: INCONNUE
     Route: 048
     Dates: end: 20191111
  4. NOZINAN [LEVOMEPROMAZINE] [Concomitant]
     Active Substance: LEVOMEPROMAZINE
     Indication: PSYCHOTIC DISORDER
     Route: 048
     Dates: end: 20191111
  5. DEPAMIDE [Concomitant]
     Active Substance: VALPROMIDE
     Indication: PSYCHOTIC DISORDER
     Route: 048
     Dates: end: 20191111
  6. LOXAPAC [LOXAPINE] [Concomitant]
     Active Substance: LOXAPINE
     Indication: PSYCHOTIC DISORDER
     Route: 048
     Dates: end: 20191111
  7. ZUCLOPENTHIXOL [Concomitant]
     Active Substance: ZUCLOPENTHIXOL
     Indication: PSYCHOTIC DISORDER
     Route: 030
     Dates: end: 20191111
  8. LEPTICUR [Concomitant]
     Active Substance: TROPATEPINE HYDROCHLORIDE
     Indication: PARKINSONISM
     Route: 048
     Dates: end: 20191111

REACTIONS (2)
  - Coma [Recovered/Resolved]
  - Somnolence [Recovered/Resolved]

NARRATIVE: CASE EVENT DATE: 20191104
